FAERS Safety Report 8995605 (Version 1)
Quarter: 2013Q1

REPORT INFORMATION
  Report Type: Spontaneous
  Country: US (occurrence: US)
  Receive Date: 20130103
  Receipt Date: 20130103
  Transmission Date: 20140127
  Serious: No
  Sender: FDA-Public Use
  Company Number: US-ABBOTT-12P-163-0897803-00

PATIENT
  Sex: Female
  Weight: 71.73 kg

DRUGS (2)
  1. SYNTHROID 88 MCG [Suspect]
     Indication: PRODUCT USED FOR UNKNOWN INDICATION
     Dates: start: 20120119
  2. SYNTHROID 88 MCG [Suspect]
     Dates: end: 20120119

REACTIONS (5)
  - Dizziness [Recovering/Resolving]
  - Feeling abnormal [Recovering/Resolving]
  - Irritability [Recovering/Resolving]
  - Mood altered [Recovering/Resolving]
  - Nervousness [Recovering/Resolving]
